FAERS Safety Report 5763540-9 (Version None)
Quarter: 2008Q2

REPORT INFORMATION
  Report Type: 
  Country: None (occurrence: None)
  Receive Date: 20080610
  Receipt Date: 20080529
  Transmission Date: 20081010
  Serious: Yes (Hospitalization)
  Sender: FDA-Public Use
  Company Number: GB-JNJFOC-20071003776

PATIENT
  Sex: Female
  Weight: 60 kg

DRUGS (15)
  1. INFLIXIMAB [Suspect]
     Route: 042
  2. INFLIXIMAB [Suspect]
     Route: 042
  3. INFLIXIMAB [Suspect]
     Route: 042
  4. INFLIXIMAB [Suspect]
     Route: 042
  5. INFLIXIMAB [Suspect]
     Route: 042
  6. INFLIXIMAB [Suspect]
     Indication: RHEUMATOID ARTHRITIS
     Route: 042
  7. VITAMIN B-12 [Concomitant]
  8. METHOTREXATE [Concomitant]
  9. ASACOL [Concomitant]
  10. MAXALON [Concomitant]
  11. CYCLAZINE [Concomitant]
  12. FOLIC ACID [Concomitant]
  13. OMEPRAZOLE [Concomitant]
  14. ZOPICLONE [Concomitant]
  15. ACETAMINOPHEN W/ CODEINE [Concomitant]

REACTIONS (1)
  - LISTERIA SEPSIS [None]
